FAERS Safety Report 24689361 (Version 2)
Quarter: 2024Q4

REPORT INFORMATION
  Report Type: Report from Study
  Country: CA (occurrence: CA)
  Receive Date: 20241203
  Receipt Date: 20241219
  Transmission Date: 20250114
  Serious: Yes (Hospitalization)
  Sender: ROCHE
  Company Number: CA-ROCHE-10000146143

PATIENT
  Sex: Female

DRUGS (3)
  1. ENSPRYNG [Suspect]
     Active Substance: SATRALIZUMAB-MWGE
     Indication: Neuromyelitis optica spectrum disorder
     Dosage: MORE DOSAGE INFORMATION - 120 MG AT WEEKS 0, 2, AND 4 THEN EVERY 4 WEEKS
     Route: 058
     Dates: start: 20220712
  2. ENSPRYNG [Suspect]
     Active Substance: SATRALIZUMAB-MWGE
  3. ENSPRYNG [Suspect]
     Active Substance: SATRALIZUMAB-MWGE

REACTIONS (1)
  - Kidney infection [Unknown]
